FAERS Safety Report 9252558 (Version 2)
Quarter: 2014Q1

REPORT INFORMATION
  Report Type: Spontaneous
  Country: US (occurrence: US)
  Receive Date: 20130424
  Receipt Date: 20140224
  Transmission Date: 20141002
  Serious: Yes (Other)
  Sender: FDA-Public Use
  Company Number: US-009507513-1304USA014195

PATIENT
  Sex: Male

DRUGS (3)
  1. PROPECIA [Suspect]
     Indication: ANDROGENETIC ALOPECIA
     Dosage: 1 MG, UNK
     Route: 048
     Dates: start: 2000, end: 2003
  2. EFFEXOR [Suspect]
     Indication: DEPRESSION
     Dosage: UNK
     Dates: start: 1993, end: 2003
  3. EFFEXOR [Suspect]
     Indication: ANXIETY

REACTIONS (24)
  - Cholecystectomy [Unknown]
  - Erectile dysfunction [Not Recovered/Not Resolved]
  - Sexual dysfunction [Not Recovered/Not Resolved]
  - Hypogonadism male [Unknown]
  - Obesity [Unknown]
  - Hypertension [Unknown]
  - Cholelithiasis [Unknown]
  - Hepatic steatosis [Unknown]
  - Eye disorder [Unknown]
  - Insomnia [Unknown]
  - Diarrhoea [Unknown]
  - Pollakiuria [Recovered/Resolved]
  - Dysuria [Recovered/Resolved]
  - Sinus disorder [Unknown]
  - Affective disorder [Recovering/Resolving]
  - Anxiety [Recovering/Resolving]
  - Respiratory tract congestion [Unknown]
  - Cough [Unknown]
  - Hypothalamo-pituitary disorder [Unknown]
  - Depression [Recovered/Resolved]
  - Bladder obstruction [Recovered/Resolved]
  - Libido decreased [Unknown]
  - Thyroid disorder [Unknown]
  - Dyslipidaemia [Unknown]
